FAERS Safety Report 5126537-8 (Version None)
Quarter: 2007Q1

REPORT INFORMATION
  Report Type: 
  Country: None (occurrence: None)
  Receive Date: 20061010
  Receipt Date: 20060928
  Transmission Date: 20070707
  Serious: Yes (Hospitalization)
  Sender: FDA-Public Use
  Company Number: 163-C5013-06060434

PATIENT
  Age: 61 Year
  Sex: Female
  Weight: 81.6 kg

DRUGS (12)
  1. REVLIMID [Suspect]
     Indication: MULTIPLE MYELOMA
     Dosage: 25 MG, DAILY X21 DAYS, ORAL
     Route: 048
     Dates: start: 20060518, end: 20060601
  2. DEXAMETHASONE TAB [Suspect]
     Indication: MULTIPLE MYELOMA
     Dosage: ORAL
     Route: 048
     Dates: start: 20060518, end: 20060601
  3. CALTRATE 600 PLUS VITAMIN D (CALTRATE PLUS) [Concomitant]
  4. NEURONTIN [Concomitant]
  5. LOPRESSOR (METOPROL TARTRATE) [Concomitant]
  6. ACYCLOVIR [Concomitant]
  7. PAROXETINE HCL [Concomitant]
  8. LIPITOR [Concomitant]
  9. LEVOXYL [Concomitant]
  10. ALLOPURINOL [Concomitant]
  11. FLUCONAZOLE [Concomitant]
  12. COZAAR [Concomitant]

REACTIONS (23)
  - ALANINE AMINOTRANSFERASE INCREASED [None]
  - ASPARTATE AMINOTRANSFERASE INCREASED [None]
  - BACK PAIN [None]
  - BLOOD ALBUMIN DECREASED [None]
  - BLOOD AMYLASE INCREASED [None]
  - BLOOD CHLORIDE INCREASED [None]
  - BLOOD CREATININE INCREASED [None]
  - BLOOD GLUCOSE INCREASED [None]
  - BLOOD UREA INCREASED [None]
  - CONFUSIONAL STATE [None]
  - ECCHYMOSIS [None]
  - EYE DISORDER [None]
  - FALL [None]
  - LUNG CONSOLIDATION [None]
  - MENTAL STATUS CHANGES [None]
  - MUSCLE SPASMS [None]
  - OXYGEN SATURATION DECREASED [None]
  - PLATELET COUNT DECREASED [None]
  - PNEUMONIA [None]
  - PROTEIN TOTAL DECREASED [None]
  - PROTEIN URINE [None]
  - RECTAL HAEMORRHAGE [None]
  - WHITE BLOOD CELL COUNT DECREASED [None]
